FAERS Safety Report 9469657 (Version 1)
Quarter: 2013Q3

REPORT INFORMATION
  Report Type: Spontaneous
  Country: GB (occurrence: GB)
  Receive Date: 20130822
  Receipt Date: 20130822
  Transmission Date: 20140515
  Serious: Yes (Other)
  Sender: FDA-Public Use
  Company Number: GB-TEVA-425771ISR

PATIENT
  Age: 89 Year
  Sex: Female

DRUGS (7)
  1. TRIMETHOPRIM [Suspect]
  2. METHOTREXATE [Interacting]
     Indication: RHEUMATOID ARTHRITIS
     Route: 048
  3. PREDNISOLONE [Concomitant]
  4. ASPIRIN [Concomitant]
  5. ALENDRONIC ACID [Concomitant]
  6. CALCEOS [Concomitant]
  7. FOLIC ACID [Concomitant]

REACTIONS (2)
  - Pancytopenia [Recovered/Resolved]
  - Drug interaction [Unknown]
